FAERS Safety Report 8677493 (Version 17)
Quarter: 2015Q4

REPORT INFORMATION
  Report Type: Spontaneous
  Country: US (occurrence: US)
  Receive Date: 20120723
  Receipt Date: 20151125
  Transmission Date: 20160305
  Serious: Yes (Life-Threatening, Hospitalization, Congenital Anomaly, Other)
  Sender: FDA-Public Use
  Company Number: US-PFIZER INC-2012173639

PATIENT
  Sex: Female
  Weight: 4 kg

DRUGS (10)
  1. PRENATAL VITAMINS [Concomitant]
     Active Substance: VITAMINS
     Dosage: UNK
     Route: 064
     Dates: start: 20050322
  2. HALDOL [Concomitant]
     Active Substance: HALOPERIDOL
     Dosage: 1 MG, 1X/DAY (AT BED TIME)
     Route: 064
     Dates: start: 20050303
  3. AMOXICILLIN. [Concomitant]
     Active Substance: AMOXICILLIN
     Dosage: UNK
     Route: 064
     Dates: start: 20050322
  4. ZOLOFT [Suspect]
     Active Substance: SERTRALINE HYDROCHLORIDE
     Dosage: UNK
     Route: 064
  5. ZOLOFT [Suspect]
     Active Substance: SERTRALINE HYDROCHLORIDE
     Indication: BIPOLAR DISORDER
     Dosage: UNK
     Route: 064
     Dates: start: 200502
  6. HALDOL [Concomitant]
     Active Substance: HALOPERIDOL
     Dosage: UNK
     Route: 064
     Dates: start: 20050322
  7. ZOLOFT [Suspect]
     Active Substance: SERTRALINE HYDROCHLORIDE
     Dosage: 25 MG, 1X/DAY (IN THE MORNING)
     Route: 064
     Dates: start: 20050303
  8. HYDROCODONE W/ACETAMINOPHEN [Concomitant]
     Active Substance: ACETAMINOPHEN\HYDROCODONE BITARTRATE
     Dosage: 7.5/750MG, UNK
     Route: 064
     Dates: start: 20041128
  9. HALDOL [Concomitant]
     Active Substance: HALOPERIDOL
     Dosage: 0.5 MG, 1X/DAY (AT BED TIME)
     Route: 064
     Dates: start: 20050222
  10. VITAMINS NOS [Concomitant]
     Active Substance: VITAMINS
     Dosage: UNK, ONCE DAILY
     Route: 064
     Dates: start: 20041204

REACTIONS (10)
  - Ventricular septal defect [Unknown]
  - Patent ductus arteriosus [Unknown]
  - Atrial septal defect [Unknown]
  - Maternal exposure timing unspecified [Not Recovered/Not Resolved]
  - Mitral valve hypoplasia [Unknown]
  - Heart disease congenital [Not Recovered/Not Resolved]
  - Coarctation of the aorta [Unknown]
  - Double outlet right ventricle [Unknown]
  - Hypoplastic left heart syndrome [Unknown]
  - Congenital heart valve disorder [Unknown]

NARRATIVE: CASE EVENT DATE: 20050324
